FAERS Safety Report 17832260 (Version 1)
Quarter: 2020Q2

REPORT INFORMATION
  Report Type: Other
  Country: FR (occurrence: FR)
  Receive Date: 20200527
  Receipt Date: 20200527
  Transmission Date: 20200714
  Serious: Yes (Hospitalization)
  Sender: FDA-Public Use
  Company Number: FR-DENTSPLY-2020SCDP000185

PATIENT
  Age: 18 Day
  Sex: Female
  Weight: 2.6 kg

DRUGS (1)
  1. PRILOCAINE AND LIDOCAINE [Suspect]
     Active Substance: LIDOCAINE\PRILOCAINE
     Indication: BIOPSY SKIN
     Dosage: 0.35 GRAM, EMLA PATCH 5 PERCENT, ADHESIVE SKIN DRESSING, 2 SITES D^ADMINISTRATION
     Route: 003
     Dates: start: 20200414, end: 20200414

REACTIONS (2)
  - Burns second degree [None]
  - Methaemoglobinaemia [Recovered/Resolved]

NARRATIVE: CASE EVENT DATE: 20200414
